FAERS Safety Report 14740058 (Version 2)
Quarter: 2018Q2

REPORT INFORMATION
  Report Type: Spontaneous
  Country: US (occurrence: US)
  Receive Date: 20180410
  Receipt Date: 20180419
  Transmission Date: 20180711
  Serious: Yes (Other)
  Sender: FDA-Public Use
  Company Number: US-TORRENT-00006012

PATIENT
  Sex: Female
  Weight: 82 kg

DRUGS (1)
  1. LOSARTAN POTASSIUM AND HYDROCHLOROTHIAZIDE [Suspect]
     Active Substance: HYDROCHLOROTHIAZIDE\LOSARTAN POTASSIUM
     Indication: HYPERTENSION
     Dosage: FROM LAST 4 YEARS NOW
     Route: 048
     Dates: start: 20180324

REACTIONS (4)
  - Product quality issue [Unknown]
  - Lip swelling [Recovered/Resolved]
  - Headache [Recovered/Resolved]
  - Wheezing [Recovered/Resolved]
